FAERS Safety Report 23431389 (Version 1)
Quarter: 2024Q1

REPORT INFORMATION
  Report Type: Spontaneous
  Country: US (occurrence: US)
  Receive Date: 20240123
  Receipt Date: 20240123
  Transmission Date: 20240410
  Serious: No
  Sender: FDA-Public Use
  Company Number: US-GSK-US2024007202

PATIENT
  Sex: Female

DRUGS (1)
  1. BENLYSTA [Suspect]
     Active Substance: BELIMUMAB
     Indication: Product use in unapproved indication
     Dosage: UNK

REACTIONS (2)
  - Condition aggravated [Not Recovered/Not Resolved]
  - Product dose omission issue [Unknown]
